FAERS Safety Report 7725750-0 (Version None)
Quarter: 2011Q3

REPORT INFORMATION
  Report Type: 
  Country: None (occurrence: None)
  Receive Date: 20110831
  Receipt Date: 20110817
  Transmission Date: 20111222
  Serious: Yes (Hospitalization, Other)
  Sender: FDA-Public Use
  Company Number: 2011P1007787

PATIENT
  Age: 65 Year
  Sex: Female

DRUGS (21)
  1. SYNTHROID [Concomitant]
  2. OS-CAL [Concomitant]
  3. FLEXPEN [Concomitant]
  4. SIMVASTATIN [Concomitant]
  5. PERCOCET [Concomitant]
  6. MAGNESIUM [Concomitant]
  7. LANTUS SOLOSTAR (INSULIN GLARGINE [RDNA ORIGIN] INJECTION) PEN [Concomitant]
  8. VALCYTE [Concomitant]
  9. MYCOPHENOLATE MOFETIL [Concomitant]
  10. RANITIDINE [Concomitant]
  11. METOPROLOL SUCCINATE EXTENDED RELEASE [Concomitant]
  12. PREDNISONE [Suspect]
     Indication: GOUT
     Dosage: 50 MG;QD;PO ; 45 MG;QD;PO ; 40 MG;QD;PO ; 35 MG;QD;PO ; 30 MG;QD;PO ; 25 MG;QD;PO ; 5 MG;QD;PO
     Route: 048
     Dates: start: 20110712, end: 20110712
  13. PREDNISONE [Suspect]
     Indication: GOUT
     Dosage: 50 MG;QD;PO ; 45 MG;QD;PO ; 40 MG;QD;PO ; 35 MG;QD;PO ; 30 MG;QD;PO ; 25 MG;QD;PO ; 5 MG;QD;PO
     Route: 048
     Dates: start: 20110707, end: 20110707
  14. PREDNISONE [Suspect]
     Indication: GOUT
     Dosage: 50 MG;QD;PO ; 45 MG;QD;PO ; 40 MG;QD;PO ; 35 MG;QD;PO ; 30 MG;QD;PO ; 25 MG;QD;PO ; 5 MG;QD;PO
     Route: 048
     Dates: start: 20110709, end: 20110709
  15. PREDNISONE [Suspect]
     Indication: GOUT
     Dosage: 50 MG;QD;PO ; 45 MG;QD;PO ; 40 MG;QD;PO ; 35 MG;QD;PO ; 30 MG;QD;PO ; 25 MG;QD;PO ; 5 MG;QD;PO
     Route: 048
     Dates: start: 20110708, end: 20110708
  16. PREDNISONE [Suspect]
     Indication: GOUT
     Dosage: 50 MG;QD;PO ; 45 MG;QD;PO ; 40 MG;QD;PO ; 35 MG;QD;PO ; 30 MG;QD;PO ; 25 MG;QD;PO ; 5 MG;QD;PO
     Route: 048
     Dates: start: 20110710, end: 20110710
  17. PREDNISONE [Suspect]
     Indication: GOUT
     Dosage: 50 MG;QD;PO ; 45 MG;QD;PO ; 40 MG;QD;PO ; 35 MG;QD;PO ; 30 MG;QD;PO ; 25 MG;QD;PO ; 5 MG;QD;PO
     Route: 048
     Dates: start: 20110714, end: 20110714
  18. PREDNISONE [Suspect]
     Indication: GOUT
     Dosage: 50 MG;QD;PO ; 45 MG;QD;PO ; 40 MG;QD;PO ; 35 MG;QD;PO ; 30 MG;QD;PO ; 25 MG;QD;PO ; 5 MG;QD;PO
     Route: 048
     Dates: start: 20110711, end: 20110711
  19. BACTRIM SS (SULFAMETHOXAZOLE AND TRIMETHOPRIM) [Concomitant]
  20. NOVOLOG (INSULIN ASPARTATE [RDNA ORIGIN] INJECTION) [Concomitant]
  21. TACROLIMUS [Concomitant]

REACTIONS (16)
  - BLOOD PRESSURE INCREASED [None]
  - CEREBRAL SMALL VESSEL ISCHAEMIC DISEASE [None]
  - RENAL TRANSPLANT [None]
  - HEADACHE [None]
  - ELECTROCARDIOGRAM T WAVE INVERSION [None]
  - TRANSIENT ISCHAEMIC ATTACK [None]
  - VIRAL INFECTION [None]
  - BLOOD SODIUM DECREASED [None]
  - ENTEROCOCCUS TEST POSITIVE [None]
  - ANGER [None]
  - PYREXIA [None]
  - DIABETES MELLITUS INADEQUATE CONTROL [None]
  - BLOOD MAGNESIUM DECREASED [None]
  - SINUS TACHYCARDIA [None]
  - LYMPHADENOPATHY [None]
  - IMMUNE SYSTEM DISORDER [None]
